FAERS Safety Report 7636674-1 (Version None)
Quarter: 2011Q3

REPORT INFORMATION
  Report Type: 
  Country: None (occurrence: None)
  Receive Date: 20110722
  Receipt Date: 20110722
  Transmission Date: 20111222
  Serious: Yes (Disabling)
  Sender: FDA-Public Use
  Company Number: None

PATIENT

DRUGS (1)
  1. COUMADIN [Suspect]

REACTIONS (3)
  - HYPERCOAGULATION [None]
  - DRUG INTERACTION [None]
  - HAEMORRHAGIC STROKE [None]
